FAERS Safety Report 8449978-X (Version None)
Quarter: 2012Q2

REPORT INFORMATION
  Report Type: 
  Country: None (occurrence: None)
  Receive Date: 20120620
  Receipt Date: 20120615
  Transmission Date: 20120825
  Serious: Yes (Death, Other)
  Sender: FDA-Public Use
  Company Number: PHHY2012MX052174

PATIENT
  Sex: Female

DRUGS (3)
  1. ZOLEDRONOC ACID [Suspect]
     Indication: OSTEOPOROSIS
     Dosage: 5 MG/100 ML, PER YEAR
     Route: 042
     Dates: start: 20080101
  2. ZOLEDRONOC ACID [Suspect]
     Route: 042
  3. ZOLEDRONOC ACID [Suspect]
     Dosage: 5 MG/100 ML, PER YEAR
     Route: 042
     Dates: start: 20100101

REACTIONS (8)
  - PULMONARY EMBOLISM [None]
  - CARDIAC DISORDER [None]
  - BONE PAIN [None]
  - SPINAL DISORDER [None]
  - CONCOMITANT DISEASE PROGRESSION [None]
  - FALL [None]
  - LUNG DISORDER [None]
  - SCOLIOSIS [None]
